FAERS Safety Report 10082832 (Version 2)
Quarter: 2014Q2

REPORT INFORMATION
  Report Type: Spontaneous
  Country: US (occurrence: US)
  Receive Date: 20140416
  Receipt Date: 20140416
  Transmission Date: 20141212
  Serious: Yes (Hospitalization, Other)
  Sender: FDA-Public Use
  Company Number: US-GILEAD-2014-0092661

PATIENT
  Sex: Female

DRUGS (4)
  1. LETAIRIS [Suspect]
     Indication: SYSTEMIC SCLEROSIS
     Dosage: 10 MG, QD
     Route: 065
     Dates: start: 20120103, end: 20140117
  2. LETAIRIS [Suspect]
     Indication: PULMONARY HYPERTENSION
  3. LETAIRIS [Suspect]
     Indication: SCLERODERMA
  4. ADCIRCA [Concomitant]
     Indication: SYSTEMIC SCLEROSIS
     Dosage: UNK
     Dates: start: 20120105, end: 20140117

REACTIONS (3)
  - Dementia [Unknown]
  - Cerebrovascular accident [Unknown]
  - Fracture [Unknown]
